FAERS Safety Report 14083126 (Version 1)
Quarter: 2017Q4

REPORT INFORMATION
  Report Type: Spontaneous
  Country: US (occurrence: US)
  Receive Date: 20171012
  Receipt Date: 20171012
  Transmission Date: 20180321
  Serious: Yes (Hospitalization, Other)
  Sender: FDA-Public Use
  Company Number: US-BRISTOL-MYERS SQUIBB COMPANY-BMS-2017-088831

PATIENT
  Age: 45 Year
  Sex: Male
  Weight: 72.6 kg

DRUGS (2)
  1. COUMADIN [Suspect]
     Active Substance: WARFARIN SODIUM
     Indication: PRODUCT USED FOR UNKNOWN INDICATION
     Route: 065
  2. REMODULIN [Suspect]
     Active Substance: TREPROSTINIL
     Indication: PULMONARY HYPERTENSION
     Dosage: 30 30 NG/KG/MIN
     Route: 042
     Dates: start: 20140904

REACTIONS (2)
  - Haematoma [Unknown]
  - Device related infection [Unknown]

NARRATIVE: CASE EVENT DATE: 20170531
